FAERS Safety Report 5099043-7 (Version None)
Quarter: 2006Q3

REPORT INFORMATION
  Report Type: 
  Country: None (occurrence: None)
  Receive Date: 20060731
  Receipt Date: 20060406
  Transmission Date: 20061208
  Serious: Yes (Other)
  Sender: FDA-Public Use
  Company Number: 223873

PATIENT
  Age: 38 Year
  Sex: Male

DRUGS (2)
  1. RITUXAN [Suspect]
     Indication: LYMPHOMA
     Dosage: 375 MG/M2
     Dates: end: 20051101
  2. FLUDARABINE PHOSPHATE [Concomitant]

REACTIONS (2)
  - HERPES VIRUS INFECTION [None]
  - NEUTROPENIA [None]
